FAERS Safety Report 11527327 (Version 8)
Quarter: 2016Q1

REPORT INFORMATION
  Report Type: Report from Study
  Country: US (occurrence: US)
  Receive Date: 20150920
  Receipt Date: 20160229
  Transmission Date: 20160525
  Serious: Yes (Hospitalization, Other)
  Sender: FDA-Public Use
  Company Number: PHEH2013US013152

PATIENT
  Age: 4 Year
  Sex: Male
  Weight: 18.7 kg

DRUGS (11)
  1. ILARIS [Suspect]
     Active Substance: CANAKINUMAB
     Dosage: 60 MG, QW
     Route: 058
     Dates: start: 20151223
  2. ILARIS [Suspect]
     Active Substance: CANAKINUMAB
     Indication: JUVENILE IDIOPATHIC ARTHRITIS
     Dosage: 40 MG, EVERY 4 WEEKS
     Route: 058
     Dates: start: 201210
  3. ILARIS [Suspect]
     Active Substance: CANAKINUMAB
     Dosage: UNK
     Route: 058
     Dates: start: 20141104
  4. ILARIS [Suspect]
     Active Substance: CANAKINUMAB
     Dosage: 60 MG, UNK
     Route: 058
     Dates: start: 20151205
  5. IBUPROFEN. [Concomitant]
     Active Substance: IBUPROFEN
     Indication: PYREXIA
     Dosage: 7.5 ML, TID
     Route: 048
  6. ILARIS [Suspect]
     Active Substance: CANAKINUMAB
     Dosage: 60 MG, UNK
     Route: 058
  7. ILARIS [Suspect]
     Active Substance: CANAKINUMAB
     Dosage: 50 MG, EVERY 4 WEEKS
     Route: 058
     Dates: start: 20151015
  8. ORAPRED [Concomitant]
     Active Substance: PREDNISOLONE SODIUM PHOSPHATE
     Indication: ARTHRALGIA
     Route: 048
  9. ILARIS [Suspect]
     Active Substance: CANAKINUMAB
     Indication: PYREXIA
     Dosage: 40 MG, EVERY 8 WEEKS
     Route: 058
  10. ILARIS [Suspect]
     Active Substance: CANAKINUMAB
     Dosage: 50 MG, EVERY 4 WEEKS
     Route: 058
     Dates: start: 20130614
  11. ILARIS [Suspect]
     Active Substance: CANAKINUMAB
     Indication: RHEUMATOID ARTHRITIS
     Dosage: 50 MG, EVERY ONE MONTH
     Route: 058
     Dates: start: 201303

REACTIONS (15)
  - Cough [Recovered/Resolved]
  - Arthralgia [Recovering/Resolving]
  - Viral infection [Unknown]
  - Condition aggravated [Unknown]
  - Pyrexia [Recovering/Resolving]
  - Gastroenteritis [Recovered/Resolved]
  - Vomiting [Recovering/Resolving]
  - Respiratory tract infection [Unknown]
  - Pyrexia [Recovered/Resolved]
  - Hepatic enzyme increased [Unknown]
  - Infection [Unknown]
  - Diarrhoea [Recovering/Resolving]
  - Bacterial infection [Unknown]
  - Rash [Recovering/Resolving]
  - Histiocytosis haematophagic [Unknown]

NARRATIVE: CASE EVENT DATE: 20130925
